FAERS Safety Report 5989559-0 (Version None)
Quarter: 2008Q4

REPORT INFORMATION
  Report Type: 
  Country: None (occurrence: None)
  Receive Date: 20081208
  Receipt Date: 20081124
  Transmission Date: 20090506
  Serious: Yes (Other)
  Sender: FDA-Public Use
  Company Number: 2008-04406

PATIENT
  Age: 71 Year
  Sex: Male

DRUGS (16)
  1. VELCADE [Suspect]
     Indication: DRUG USE FOR UNKNOWN INDICATION
  2. REVLIMID [Suspect]
     Indication: MULTIPLE MYELOMA
     Dosage: 25 MG, ORAL
     Route: 048
     Dates: start: 20080630
  3. ARANESP [Concomitant]
  4. COUMADIN (WARFAIN SODIUM) [Concomitant]
  5. DEXAMETHASONE [Concomitant]
  6. ASPIRIN [Concomitant]
  7. HYDROCHLOROTHIAZIDE [Concomitant]
  8. SYNTHROID [Concomitant]
  9. MEGACE [Concomitant]
  10. QUINAPRIL HCL [Concomitant]
  11. PROTONIX [Concomitant]
  12. COMPAZINE [Concomitant]
  13. ATIVAN [Concomitant]
  14. EFFEXOR - SLOW RELEASE (VENLAFAXINE HYDROCHLORIDE) [Concomitant]
  15. OXYCONTIN [Concomitant]
  16. PERCOCET [Concomitant]

REACTIONS (5)
  - DEEP VEIN THROMBOSIS [None]
  - NEUROPATHY PERIPHERAL [None]
  - OEDEMA PERIPHERAL [None]
  - VASCULITIC RASH [None]
  - VASCULITIS [None]
